FAERS Safety Report 9014898 (Version 2)
Quarter: 2013Q1

REPORT INFORMATION
  Report Type: Spontaneous
  Country: US (occurrence: US)
  Receive Date: 20130116
  Receipt Date: 20130226
  Transmission Date: 20140127
  Serious: No
  Sender: FDA-Public Use
  Company Number: US-BIOGENIDEC-2013BI001832

PATIENT
  Age: 41 Year
  Sex: Female

DRUGS (10)
  1. TYSABRI [Suspect]
     Indication: MULTIPLE SCLEROSIS
     Route: 042
     Dates: start: 201002
  2. TYSABRI [Suspect]
     Indication: MULTIPLE SCLEROSIS
     Route: 042
     Dates: start: 20110518, end: 20121120
  3. TYSABRI [Suspect]
     Indication: MULTIPLE SCLEROSIS
     Route: 042
     Dates: end: 20130201
  4. ABOBOTULINUMTOXIN A [Concomitant]
     Route: 030
  5. DALFAMPRIDINE [Concomitant]
     Route: 048
  6. GLATIRAMER [Concomitant]
     Route: 023
  7. PREDNISONE [Concomitant]
     Route: 048
  8. SERTRALINE [Concomitant]
     Route: 048
  9. COPAXONE [Concomitant]
  10. SOLUMEDROL [Concomitant]

REACTIONS (5)
  - Muscle spasticity [Unknown]
  - Paraesthesia [Unknown]
  - Sensory disturbance [Unknown]
  - Muscular weakness [Unknown]
  - Drug ineffective [Unknown]
